FAERS Safety Report 8484834-2 (Version None)
Quarter: 2012Q3

REPORT INFORMATION
  Report Type: 
  Country: None (occurrence: None)
  Receive Date: 20120703
  Receipt Date: 20120627
  Transmission Date: 20120928
  Serious: Yes (Hospitalization)
  Sender: FDA-Public Use
  Company Number: JP-EISAI INC-E2020-10947-SPO-JP

PATIENT
  Age: 85 Year
  Sex: Female

DRUGS (1)
  1. ARICEPT [Suspect]
     Route: 048

REACTIONS (2)
  - BEDRIDDEN [None]
  - DYSPHAGIA [None]
